FAERS Safety Report 6536077-7 (Version None)
Quarter: 2010Q1

REPORT INFORMATION
  Report Type: 
  Country: None (occurrence: None)
  Receive Date: 20100113
  Receipt Date: 20090928
  Transmission Date: 20100710
  Serious: No
  Sender: FDA-Public Use
  Company Number: US-ALLERGAN-0913478US

PATIENT
  Age: 37 Year
  Sex: Female

DRUGS (1)
  1. LATISSE [Suspect]
     Indication: GROWTH OF EYELASHES
     Dosage: UNK
     Route: 061
     Dates: start: 20090916, end: 20090927

REACTIONS (3)
  - ERYTHEMA OF EYELID [None]
  - EYELID OEDEMA [None]
  - EYELID PAIN [None]
